FAERS Safety Report 8550033-9 (Version None)
Quarter: 2012Q3

REPORT INFORMATION
  Report Type: 
  Country: None (occurrence: None)
  Receive Date: 20120718
  Receipt Date: 20120621
  Transmission Date: 20120928
  Serious: Yes (Hospitalization)
  Sender: FDA-Public Use
  Company Number: 54973AE#922

PATIENT
  Age: 9 Month
  Sex: Female

DRUGS (1)
  1. HYLAND'S BABY TEETHING TABLETS [Suspect]
     Indication: TEETHING
     Dosage: 2 TABLETS AT BEDTIME

REACTIONS (3)
  - LETHARGY [None]
  - ABNORMAL BEHAVIOUR [None]
  - DEPRESSED LEVEL OF CONSCIOUSNESS [None]
